FAERS Safety Report 6782659-7 (Version None)
Quarter: 2010Q2

REPORT INFORMATION
  Report Type: 
  Country: None (occurrence: None)
  Receive Date: 20100621
  Receipt Date: 20100615
  Transmission Date: 20101027
  Serious: Yes (Life-Threatening, Hospitalization, Other)
  Sender: FDA-Public Use
  Company Number: PHHY2010FR39352

PATIENT
  Sex: Male

DRUGS (2)
  1. NEORAL [Suspect]
     Indication: RENAL TRANSPLANT
     Dosage: UNK
     Dates: start: 19880101, end: 20020601
  2. PROGRAF [Suspect]
     Dosage: 3 MG IN THE MORNING AND 3 MG IN THE EVENING
     Dates: start: 20020601

REACTIONS (15)
  - ASTHENIA [None]
  - BURKITT'S LYMPHOMA [None]
  - DIALYSIS [None]
  - DIARRHOEA [None]
  - GENERAL PHYSICAL HEALTH DETERIORATION [None]
  - HAEMATEMESIS [None]
  - KIDNEY TRANSPLANT REJECTION [None]
  - MALIGNANT PERITONEAL NEOPLASM [None]
  - NEUROPSYCHOLOGICAL TEST ABNORMAL [None]
  - OSTEONECROSIS [None]
  - RENAL TRANSPLANT [None]
  - SEPTIC SHOCK [None]
  - STAPHYLOCOCCAL INFECTION [None]
  - TYPE 2 DIABETES MELLITUS [None]
  - WEIGHT DECREASED [None]
